FAERS Safety Report 9731183 (Version 2)
Quarter: 2013Q4

REPORT INFORMATION
  Report Type: Spontaneous
  Country: FR (occurrence: FR)
  Receive Date: 20131203
  Receipt Date: 20131217
  Transmission Date: 20140711
  Serious: Yes (Hospitalization, Disabling)
  Sender: FDA-Public Use
  Company Number: FR-BRACCO-001285

PATIENT
  Age: 57 Year
  Sex: Female
  Weight: 48 kg

DRUGS (4)
  1. MULTIHANCE [Suspect]
     Indication: ANGIOGRAM
     Route: 042
     Dates: start: 20070216, end: 20070216
  2. DOTAREM [Suspect]
     Indication: NUCLEAR MAGNETIC RESONANCE IMAGING
     Route: 042
     Dates: start: 20070223, end: 20070223
  3. DOTAREM [Suspect]
     Indication: NUCLEAR MAGNETIC RESONANCE IMAGING
     Route: 042
     Dates: start: 20130129, end: 20130129
  4. MAGNEVIST [Suspect]
     Indication: NUCLEAR MAGNETIC RESONANCE IMAGING
     Route: 042
     Dates: start: 20090703, end: 20090703

REACTIONS (1)
  - Nephrogenic systemic fibrosis [Not Recovered/Not Resolved]
